FAERS Safety Report 6519386-7 (Version None)
Quarter: 2009Q4

REPORT INFORMATION
  Report Type: 
  Country: None (occurrence: None)
  Receive Date: 20091224
  Receipt Date: 20091224
  Transmission Date: 20100525
  Serious: Yes (Other)
  Sender: FDA-Public Use
  Company Number: None

PATIENT
  Age: 31 Year
  Sex: Male
  Weight: 95.2554 kg

DRUGS (1)
  1. CAPZASIN CAPSAICIN  0.15% CHATTERN, INC. [Suspect]
     Indication: NECK PAIN
     Dates: start: 20091223, end: 20091223

REACTIONS (2)
  - BURNING SENSATION [None]
  - DIZZINESS [None]
